FAERS Safety Report 6764115-5 (Version None)
Quarter: 2010Q2

REPORT INFORMATION
  Report Type: 
  Country: None (occurrence: None)
  Receive Date: 20100610
  Receipt Date: 20100531
  Transmission Date: 20101027
  Serious: Yes (Other)
  Sender: FDA-Public Use
  Company Number: AU-BAXTER-2010BH014602

PATIENT
  Age: 4 Year
  Sex: Male

DRUGS (1)
  1. RECOMBINATE [Suspect]
     Indication: COAGULATION FACTOR VIII LEVEL ABNORMAL
     Route: 065

REACTIONS (1)
  - INFECTION [None]
